FAERS Safety Report 20896364 (Version 1)
Quarter: 2022Q2

REPORT INFORMATION
  Report Type: Spontaneous
  Country: US (occurrence: None)
  Receive Date: 20220530
  Receipt Date: 20220530
  Transmission Date: 20220721
  Serious: No
  Sender: FDA-Public Use
  Company Number: None

PATIENT
  Age: 56 Year
  Sex: Female
  Weight: 62.55 kg

DRUGS (3)
  1. PAXLOVID [Suspect]
     Active Substance: NIRMATRELVIR\RITONAVIR
     Indication: COVID-19
     Dosage: OTHER STRENGTH : UNKNOWN;?OTHER QUANTITY : 30 TABLET(S);?FREQUENCY : TWICE A DAY;?
     Route: 048
  2. VITAMIN B [Concomitant]
     Active Substance: VITAMIN B
  3. POTASSIUM [Concomitant]
     Active Substance: POTASSIUM

REACTIONS (3)
  - Nausea [None]
  - Pyrexia [None]
  - Malaise [None]

NARRATIVE: CASE EVENT DATE: 20220530
